FAERS Safety Report 4866302-X (Version None)
Quarter: 2005Q4

REPORT INFORMATION
  Report Type: 
  Country: None (occurrence: None)
  Receive Date: 20051221
  Receipt Date: 20051207
  Transmission Date: 20060501
  Serious: Yes (Hospitalization)
  Sender: FDA-Public Use
  Company Number: HQWYE934409DEC05

PATIENT
  Age: 28 Year
  Sex: Male

DRUGS (1)
  1. RAPAMUNE [Suspect]
     Indication: PROPHYLAXIS AGAINST TRANSPLANT REJECTION
     Dosage: 4 MG 1X PER 1 DAY ORAL
     Route: 048
     Dates: start: 20050210

REACTIONS (5)
  - DECREASED APPETITE [None]
  - KIDNEY TRANSPLANT REJECTION [None]
  - MALAISE [None]
  - PRODUCTIVE COUGH [None]
  - VOMITING [None]
